FAERS Safety Report 10169263 (Version 6)
Quarter: 2015Q2

REPORT INFORMATION
  Report Type: Spontaneous
  Country: US (occurrence: US)
  Receive Date: 20140513
  Receipt Date: 20150612
  Transmission Date: 20150821
  Serious: Yes (Hospitalization)
  Sender: FDA-Public Use
  Company Number: US-PFIZER INC-2014129398

PATIENT
  Age: 66 Year
  Sex: Female
  Weight: 91 kg

DRUGS (4)
  1. DETROL LA [Suspect]
     Active Substance: TOLTERODINE TARTRATE
     Indication: HYPERTONIC BLADDER
     Dosage: 4 MG, DAILY
     Dates: start: 20070719
  2. BENICAR [Concomitant]
     Active Substance: OLMESARTAN MEDOXOMIL
     Indication: BLOOD PRESSURE
     Dosage: UNK, DAILY
  3. DETROL LA [Suspect]
     Active Substance: TOLTERODINE TARTRATE
     Dosage: 20 MG, 1X/DAY
     Dates: start: 2005
  4. XANAX [Concomitant]
     Active Substance: ALPRAZOLAM
     Indication: PANIC ATTACK

REACTIONS (1)
  - Cerebrovascular accident [Recovered/Resolved]

NARRATIVE: CASE EVENT DATE: 20140418
